FAERS Safety Report 20758655 (Version 1)
Quarter: 2022Q2

REPORT INFORMATION
  Report Type: Spontaneous
  Country: US (occurrence: US)
  Receive Date: 20220427
  Receipt Date: 20220427
  Transmission Date: 20220721
  Serious: No
  Sender: FDA-Public Use
  Company Number: US-PFIZER INC-202101458017

PATIENT
  Age: 69 Year
  Sex: Male
  Weight: 81.65 kg

DRUGS (2)
  1. CHANTIX [Suspect]
     Active Substance: VARENICLINE TARTRATE
     Dosage: 1 DF, 2X/DAY (2 A DAY)
  2. ATORVASTATIN [Concomitant]
     Active Substance: ATORVASTATIN
     Dosage: 1 DF, DAILY (1 TABLET ONCE DAILY)

REACTIONS (3)
  - Dry mouth [Not Recovered/Not Resolved]
  - Saliva altered [Not Recovered/Not Resolved]
  - Middle insomnia [Not Recovered/Not Resolved]
